FAERS Safety Report 6492143-6 (Version None)
Quarter: 2009Q4

REPORT INFORMATION
  Report Type: 
  Country: None (occurrence: None)
  Receive Date: 20091214
  Receipt Date: 20091204
  Transmission Date: 20100525
  Serious: Yes (Hospitalization, Other)
  Sender: FDA-Public Use
  Company Number: GB-RANBAXY-2009RR-29607

PATIENT
  Age: 33 Year
  Sex: Male

DRUGS (2)
  1. RISPERIDONE [Suspect]
     Indication: SCHIZOPHRENIA
     Dosage: 2 MG, UNK
  2. SERTRALINE HCL [Suspect]
     Indication: SCHIZOPHRENIA
     Dosage: 50 MG, UNK

REACTIONS (4)
  - EOSINOPHILIC PNEUMONIA [None]
  - PNEUMOTHORAX [None]
  - PULMONARY FIBROSIS [None]
  - RESPIRATORY FAILURE [None]
